FAERS Safety Report 8359409-6 (Version None)
Quarter: 2012Q2

REPORT INFORMATION
  Report Type: 
  Country: None (occurrence: None)
  Receive Date: 20120515
  Receipt Date: 20120508
  Transmission Date: 20120825
  Serious: Yes (Other)
  Sender: FDA-Public Use
  Company Number: GB-UCBSA-057011

PATIENT
  Age: 18 Year
  Sex: Male

DRUGS (4)
  1. CLOBAZAM [Concomitant]
     Indication: EPILEPSY
     Route: 048
  2. LAMOTRIGINE [Concomitant]
     Indication: EPILEPSY
     Route: 048
  3. VIGABATRIN [Concomitant]
     Indication: EPILEPSY
  4. VIMPAT [Suspect]
     Indication: EPILEPSY
     Route: 048
     Dates: end: 20120416

REACTIONS (3)
  - LIP SWELLING [None]
  - SWELLING FACE [None]
  - OEDEMA MOUTH [None]
